FAERS Safety Report 4846378-6 (Version None)
Quarter: 2005Q4

REPORT INFORMATION
  Report Type: 
  Country: None (occurrence: None)
  Receive Date: 20051206
  Receipt Date: 20050929
  Transmission Date: 20060501
  Serious: Yes (Death)
  Sender: FDA-Public Use
  Company Number: SE-BRISTOL-MYERS SQUIBB COMPANY-13125752

PATIENT
  Age: 65 Year
  Sex: Female

DRUGS (7)
  1. FUNGIZONE [Suspect]
     Indication: FUNGAL INFECTION
     Dosage: PATIENT PREVIOUSLY TREATED, UNKNOWN DATE AND DOSE.
     Dates: start: 20040401
  2. FUNGIZONE [Suspect]
     Indication: CLOSTRIDIAL INFECTION
     Dosage: PATIENT PREVIOUSLY TREATED, UNKNOWN DATE AND DOSE.
     Dates: start: 20040401
  3. METRONIDAZOLE [Suspect]
  4. PRIMPERAN INJ [Concomitant]
  5. FOLACIN [Concomitant]
  6. BEHEPAN [Concomitant]
  7. IMODIUM [Concomitant]

REACTIONS (3)
  - CLOSTRIDIUM COLITIS [None]
  - GENERAL PHYSICAL HEALTH DETERIORATION [None]
  - HEPATIC NECROSIS [None]
